FAERS Safety Report 8055249-6 (Version None)
Quarter: 2011Q4

REPORT INFORMATION
  Report Type: 
  Country: None (occurrence: None)
  Receive Date: 20111213
  Receipt Date: 20110920
  Transmission Date: 20120403
  Serious: No
  Sender: FDA-Public Use
  Company Number: 2011SP044446

PATIENT
  Age: 23 Year
  Sex: Male

DRUGS (4)
  1. NOVOLIN 70/30 [Concomitant]
  2. SAPHRIS [Suspect]
     Indication: SCHIZOPHRENIA
     Dosage: 10 MG; BID; SL
     Route: 060
     Dates: start: 20110701
  3. VICADIN [Concomitant]
  4. TRAZODONE HCL [Concomitant]

REACTIONS (3)
  - SPEECH DISORDER [None]
  - INCORRECT ROUTE OF DRUG ADMINISTRATION [None]
  - ANXIETY [None]
